FAERS Safety Report 5214250-8 (Version None)
Quarter: 2007Q1

REPORT INFORMATION
  Report Type: 
  Country: None (occurrence: None)
  Receive Date: 20070122
  Receipt Date: 20070112
  Transmission Date: 20070707
  Serious: Yes (Hospitalization)
  Sender: FDA-Public Use
  Company Number: JP-JNJFOC-20061206982

PATIENT
  Sex: Female
  Weight: 49.4 kg

DRUGS (14)
  1. REMICADE [Suspect]
     Route: 042
  2. REMICADE [Suspect]
     Route: 042
  3. REMICADE [Suspect]
     Route: 042
  4. REMICADE [Suspect]
     Route: 042
  5. REMICADE [Suspect]
     Route: 042
  6. REMICADE [Suspect]
     Route: 042
  7. REMICADE [Suspect]
     Route: 042
  8. REMICADE [Suspect]
     Route: 042
  9. REMICADE [Suspect]
     Route: 042
  10. REMICADE [Suspect]
     Indication: BEHCET'S SYNDROME
     Route: 042
  11. MYDRIN [Concomitant]
     Indication: BEHCET'S SYNDROME
     Dosage: DATE OF ADMINISTRATION: BEFORE 25-OCT-05. ROUTE OF ADMINISTRATION: IO FOR RIGHT AND LEFT EYE
  12. NEOSTELIN GREEN [Concomitant]
     Indication: PERIODONTITIS
     Dosage: DATE OF ADMINISTRATION: BEFORE 25-OCT-05. ROUTE OF ADMINISTRATION: TO
  13. ADOFEED [Concomitant]
     Indication: ARTHRITIS
     Dosage: DATE OF ADMINISTRATION: BEFORE 25-OCT-06. ROUTE OF ADMINISTRATION: TO
  14. ISODINE GARGLE [Concomitant]
     Indication: PERIODONTITIS
     Dosage: DATE OF ADMINISTRATION: BEFORE 25-OCT-05. ROUTE OF ADMINISTRATION: TO

REACTIONS (1)
  - COLITIS ISCHAEMIC [None]
